FAERS Safety Report 21356288 (Version 3)
Quarter: 2022Q4

REPORT INFORMATION
  Report Type: Spontaneous
  Country: CN (occurrence: CN)
  Receive Date: 20220920
  Receipt Date: 20221020
  Transmission Date: 20230112
  Serious: Yes (Life-Threatening, Hospitalization)
  Sender: FDA-Public Use
  Company Number: CN-Eisai Medical Research-EC-2022-123730

PATIENT
  Age: 45 Year
  Sex: Male
  Weight: 75 kg

DRUGS (7)
  1. HALAVEN [Suspect]
     Active Substance: ERIBULIN MESYLATE
     Indication: Soft tissue sarcoma
     Route: 041
     Dates: start: 20220805, end: 2022
  2. HALAVEN [Suspect]
     Active Substance: ERIBULIN MESYLATE
     Indication: Soft tissue sarcoma
     Route: 041
     Dates: start: 20220903, end: 20220907
  3. HALAVEN [Suspect]
     Active Substance: ERIBULIN MESYLATE
     Route: 041
     Dates: start: 20220911, end: 20220911
  4. DOCETAXEL [Suspect]
     Active Substance: DOCETAXEL
     Indication: Soft tissue sarcoma
     Dosage: FREQUENCY UNKNOWN
     Route: 041
     Dates: start: 20220812, end: 20220812
  5. GEMCITABINE [Suspect]
     Active Substance: GEMCITABINE
     Indication: Soft tissue sarcoma
     Dosage: FREQUENCY UNKNOWN
     Route: 041
     Dates: start: 20220805, end: 20220812
  6. GEMCITABINE [Suspect]
     Active Substance: GEMCITABINE
     Indication: Soft tissue sarcoma
     Route: 041
     Dates: start: 20220903, end: 20220907
  7. GEMCITABINE [Suspect]
     Active Substance: GEMCITABINE
     Route: 041
     Dates: start: 20220911, end: 20220911

REACTIONS (5)
  - White blood cell count decreased [Recovered/Resolved]
  - Neutrophil count decreased [Recovered/Resolved]
  - Pyrexia [Recovered/Resolved]
  - Asthenia [Recovered/Resolved]
  - Cytopenia [Recovered/Resolved]

NARRATIVE: CASE EVENT DATE: 20220821
